FAERS Safety Report 9120071 (Version 2)
Quarter: 2013Q2

REPORT INFORMATION
  Report Type: Spontaneous
  Country: RU (occurrence: RU)
  Receive Date: 20130226
  Receipt Date: 20130412
  Transmission Date: 20140414
  Serious: Yes (Other)
  Sender: FDA-Public Use
  Company Number: RU-BAYER-2013-021249

PATIENT
  Age: 35 Year
  Sex: Female

DRUGS (3)
  1. MIRENA [Suspect]
     Dosage: 20 MCG/24HR, CONT
     Route: 015
  2. YARINA [Suspect]
     Dosage: UNK
     Dates: start: 201202, end: 201302
  3. UNCODEABLE ^UNCLASSIFIABLE^ [Concomitant]
     Indication: GASTRITIS

REACTIONS (2)
  - Headache [Recovered/Resolved]
  - Abortion threatened [Recovered/Resolved]
